FAERS Safety Report 7137981-1 (Version None)
Quarter: 2010Q4

REPORT INFORMATION
  Report Type: 
  Country: None (occurrence: None)
  Receive Date: 20101103
  Receipt Date: 20100809
  Transmission Date: 20110411
  Serious: Yes (Other)
  Sender: FDA-Public Use
  Company Number: 2010S1001115

PATIENT
  Age: 77 Year
  Sex: Male

DRUGS (1)
  1. CUBICIN [Suspect]
     Indication: CENTRAL NERVOUS SYSTEM INFECTION
     Dosage: 8 MG/KG;
     Dates: end: 20100806

REACTIONS (1)
  - PNEUMONIA [None]
